FAERS Safety Report 11025067 (Version 1)
Quarter: 2015Q2

REPORT INFORMATION
  Report Type: Spontaneous
  Country: IT (occurrence: IT)
  Receive Date: 20150414
  Receipt Date: 20150414
  Transmission Date: 20150821
  Serious: Yes (Other)
  Sender: FDA-Public Use
  Company Number: IT-TEVA-553468ACC

PATIENT
  Age: 48 Year
  Sex: Male

DRUGS (1)
  1. CARBAMAZEPINE. [Suspect]
     Active Substance: CARBAMAZEPINE
     Indication: PRODUCT USED FOR UNKNOWN INDICATION
     Dosage: 1400 MILLIGRAM DAILY; 1400 MG DAILY
     Route: 048
     Dates: start: 20140101, end: 20140501

REACTIONS (2)
  - Extrapyramidal disorder [Unknown]
  - Sopor [Unknown]

NARRATIVE: CASE EVENT DATE: 20140502
